FAERS Safety Report 25469938 (Version 1)
Quarter: 2025Q2

REPORT INFORMATION
  Report Type: Spontaneous
  Country: US (occurrence: US)
  Receive Date: 20250623
  Receipt Date: 20250623
  Transmission Date: 20250717
  Serious: No
  Sender: KRAMER LABORATORIES
  Company Number: US-KRAMERLABS-2024-US-069359

PATIENT
  Sex: Male

DRUGS (1)
  1. NIZORAL [Suspect]
     Active Substance: KETOCONAZOLE
     Indication: Folliculitis
     Route: 061

REACTIONS (4)
  - Pruritus [Unknown]
  - Alopecia [Unknown]
  - Product use in unapproved indication [Unknown]
  - Intentional product misuse [Unknown]
